FAERS Safety Report 9524921 (Version 1)
Quarter: 2013Q1

REPORT INFORMATION
  Report Type: Spontaneous
  Country: US (occurrence: None)
  Receive Date: 20130313
  Receipt Date: 20130313
  Transmission Date: 20140127
  Serious: Yes (Other)
  Sender: FDA-Public Use
  Company Number: 1000037100

PATIENT
  Age: 26 Year
  Sex: Female

DRUGS (1)
  1. SAVELLA (MILNACIPRAN HYDROCHLORIDE) (12.5 MILLIGRAM, TABLETS) [Suspect]
     Indication: FIBROMYALGIA
     Route: 048
     Dates: start: 200109, end: 2001

REACTIONS (2)
  - False negative pregnancy test [None]
  - Maternal exposure during pregnancy [None]
